FAERS Safety Report 5794081-0 (Version None)
Quarter: 2008Q2

REPORT INFORMATION
  Report Type: 
  Country: None (occurrence: None)
  Receive Date: 20080627
  Receipt Date: 20080618
  Transmission Date: 20081010
  Serious: Yes (Life-Threatening, Other)
  Sender: FDA-Public Use
  Company Number: US-PFIZER INC-2008043929

PATIENT
  Sex: Female
  Weight: 57 kg

DRUGS (7)
  1. UNASYN [Suspect]
     Indication: SIALOADENITIS
     Route: 042
  2. VYTORIN [Concomitant]
  3. ALTACE [Concomitant]
  4. ASPIRIN [Concomitant]
  5. FIBERCON [Concomitant]
  6. SURFAK [Concomitant]
  7. LEXAPRO [Concomitant]

REACTIONS (2)
  - ANAPHYLACTIC REACTION [None]
  - CARDIO-RESPIRATORY ARREST [None]
